FAERS Safety Report 25597984 (Version 1)
Quarter: 2025Q3

REPORT INFORMATION
  Report Type: Spontaneous
  Country: US (occurrence: US)
  Receive Date: 20250723
  Receipt Date: 20250723
  Transmission Date: 20251020
  Serious: Yes (Hospitalization, Other)
  Sender: CIPLA
  Company Number: US-CIPLA LTD.-2025US08840

PATIENT

DRUGS (1)
  1. SEVELAMER [Suspect]
     Active Substance: SEVELAMER
     Indication: Product used for unknown indication
     Route: 048

REACTIONS (3)
  - Tachycardia [Recovering/Resolving]
  - Aspiration [Recovering/Resolving]
  - Bronchial obstruction [Recovering/Resolving]
